FAERS Safety Report 25485527 (Version 2)
Quarter: 2025Q2

REPORT INFORMATION
  Report Type: Spontaneous
  Country: US (occurrence: US)
  Receive Date: 20250626
  Receipt Date: 20250627
  Transmission Date: 20250717
  Serious: Yes (Death)
  Sender: CB FLEET
  Company Number: US-PRESTIGE-202506-US-001794

PATIENT
  Age: 5 Year
  Sex: Female

DRUGS (1)
  1. DIETARY SUPPLEMENT [Suspect]
     Active Substance: DIETARY SUPPLEMENT
     Indication: Product used for unknown indication
     Route: 048

REACTIONS (3)
  - Pneumonia aspiration [Fatal]
  - Bacterial infection [Fatal]
  - Nausea [Unknown]
